FAERS Safety Report 4756526-4 (Version None)
Quarter: 2005Q3

REPORT INFORMATION
  Report Type: 
  Country: None (occurrence: None)
  Receive Date: 20050830
  Receipt Date: 20050722
  Transmission Date: 20060218
  Serious: No
  Sender: FDA-Public Use
  Company Number: US-GLAXOSMITHKLINE-A0567246A

PATIENT
  Age: 69 Year
  Sex: Female

DRUGS (4)
  1. WELLBUTRIN XL [Suspect]
     Indication: DEPRESSION
     Dosage: 300MG PER DAY
     Route: 048
     Dates: start: 20050711
  2. NORVASC [Concomitant]
  3. MYOCARDON [Concomitant]
     Route: 065
  4. ALPRAZOLAM [Concomitant]

REACTIONS (3)
  - AGITATION [None]
  - CONSTIPATION [None]
  - PALPITATIONS [None]
